FAERS Safety Report 4812717-5 (Version None)
Quarter: 2005Q4

REPORT INFORMATION
  Report Type: 
  Country: None (occurrence: None)
  Receive Date: 20051028
  Receipt Date: 20041110
  Transmission Date: 20060501
  Serious: No
  Sender: FDA-Public Use
  Company Number: US-GLAXOSMITHKLINE-A0533419A

PATIENT
  Age: 69 Year
  Sex: Female

DRUGS (6)
  1. ADVAIR DISKUS 100/50 [Suspect]
     Indication: CHRONIC OBSTRUCTIVE PULMONARY DISEASE
     Dosage: 1PUFF TWICE PER DAY
     Route: 055
     Dates: start: 20041012, end: 20041025
  2. ASTELIN [Concomitant]
  3. NASONEX [Concomitant]
  4. VERAPAMIL [Concomitant]
  5. PRILOSEC [Concomitant]
  6. SYNTHROID [Concomitant]

REACTIONS (3)
  - COUGH [None]
  - PRODUCTIVE COUGH [None]
  - THROAT IRRITATION [None]
